FAERS Safety Report 5448412-1 (Version None)
Quarter: 2007Q3

REPORT INFORMATION
  Report Type: 
  Country: None (occurrence: None)
  Receive Date: 20070905
  Receipt Date: 20070829
  Transmission Date: 20080115
  Serious: Yes (Other)
  Sender: FDA-Public Use
  Company Number: 2007RL000391

PATIENT
  Age: 66 Year
  Sex: Male

DRUGS (21)
  1. LOVAZA [Suspect]
     Indication: BLOOD TRIGLYCERIDES INCREASED
     Dosage: 1 GM; BID; PO, 2 GM; BID; PO
     Route: 048
     Dates: start: 20070201, end: 20070801
  2. LOVAZA [Suspect]
     Indication: BLOOD TRIGLYCERIDES INCREASED
     Dosage: 1 GM; BID; PO, 2 GM; BID; PO
     Route: 048
     Dates: start: 20070801
  3. GEMFIBROZIL [Concomitant]
  4. COREG [Concomitant]
  5. DIOVAN /01319601/ [Concomitant]
  6. PROTONIX /01263201/ [Concomitant]
  7. XANAX [Concomitant]
  8. FOLIC ACID [Concomitant]
  9. BUMEX [Concomitant]
  10. MAGNESIUM OXIDE [Concomitant]
  11. RELAFEN [Concomitant]
  12. VITAMIN B6 [Concomitant]
  13. VITAMIN B12 /00056201/ [Concomitant]
  14. VITAMIN C /00008001/ [Concomitant]
  15. ASPIRIN [Concomitant]
  16. HUMULIN N AND R [Concomitant]
  17. TACLONEX OINTMENT [Concomitant]
  18. TRAVATON EYE DROPS [Concomitant]
  19. TIMOLOL MALEATE [Concomitant]
  20. DARVOCET-N 100 [Concomitant]
  21. VITAMINS /90003601/ [Concomitant]

REACTIONS (5)
  - DYSGEUSIA [None]
  - ERUCTATION [None]
  - FREQUENT BOWEL MOVEMENTS [None]
  - PROSTATE CANCER [None]
  - THERAPEUTIC RESPONSE UNEXPECTED [None]
